FAERS Safety Report 11431400 (Version 3)
Quarter: 2015Q3

REPORT INFORMATION
  Report Type: Spontaneous
  Country: US (occurrence: US)
  Receive Date: 20150828
  Receipt Date: 20150921
  Transmission Date: 20151125
  Serious: No
  Sender: FDA-Public Use
  Company Number: ALCN2015US005398

PATIENT
  Age: 69 Year
  Sex: Female

DRUGS (2)
  1. DUREZOL [Suspect]
     Active Substance: DIFLUPREDNATE
     Indication: INJURY CORNEAL
     Dosage: 1 GTT, BID
     Route: 047
     Dates: start: 20150615, end: 20150727
  2. DUREZOL [Suspect]
     Active Substance: DIFLUPREDNATE
     Indication: VISION BLURRED

REACTIONS (2)
  - Off label use [Recovering/Resolving]
  - Therapeutic product ineffective for unapproved indication [Recovering/Resolving]

NARRATIVE: CASE EVENT DATE: 20150615
